FAERS Safety Report 7029547-9 (Version None)
Quarter: 2010Q3

REPORT INFORMATION
  Report Type: 
  Country: None (occurrence: None)
  Receive Date: 20100930
  Receipt Date: 20100918
  Transmission Date: 20110219
  Serious: Yes (Other)
  Sender: FDA-Public Use
  Company Number: 2010AP002039

PATIENT
  Age: 67 Year
  Sex: Male

DRUGS (3)
  1. MYCOPHENOLATE MOFETIL [Suspect]
     Dosage: 2000 MG;QD ; 1000 MG;QD
  2. TACROLIMUS [Suspect]
     Dosage: 1.5 MG;QD ; 0.5 MG;QD
  3. PREDNISONE [Suspect]
     Dosage: 80 MG;QD; ; 10 MG;QD; ; 5 MG;QD

REACTIONS (2)
  - NEUTROPHIL PELGER-HUET ANOMALY PRESENT [None]
  - PANCYTOPENIA [None]
